FAERS Safety Report 19800262 (Version 1)
Quarter: 2021Q3

REPORT INFORMATION
  Report Type: Spontaneous
  Country: US (occurrence: US)
  Receive Date: 20210908
  Receipt Date: 20210908
  Transmission Date: 20211014
  Serious: No
  Sender: FDA-Public Use
  Company Number: US-ESPERIONTHERAPEUTICS-2021USA01150

PATIENT
  Age: 80 Year
  Sex: Female

DRUGS (1)
  1. NEXLIZET [Suspect]
     Active Substance: BEMPEDOIC ACID\EZETIMIBE
     Indication: ARTERIOSCLEROSIS
     Dosage: 180MG/10MG, QD
     Route: 048
     Dates: start: 20210122, end: 20210610

REACTIONS (1)
  - Rash [Unknown]
